FAERS Safety Report 8390701-5 (Version None)
Quarter: 2012Q2

REPORT INFORMATION
  Report Type: 
  Country: None (occurrence: None)
  Receive Date: 20120529
  Receipt Date: 20120524
  Transmission Date: 20120825
  Serious: Yes (Other)
  Sender: FDA-Public Use
  Company Number: PHHY2012US030003

PATIENT
  Age: 60 Year
  Sex: Female

DRUGS (2)
  1. VERAPAMIL HCL [Suspect]
  2. AMOXAPINE [Suspect]

REACTIONS (1)
  - SHOCK [None]
